FAERS Safety Report 7058120-1 (Version None)
Quarter: 2010Q4

REPORT INFORMATION
  Report Type: 
  Country: None (occurrence: None)
  Receive Date: 20101022
  Receipt Date: 20101011
  Transmission Date: 20110411
  Serious: Yes (Other)
  Sender: FDA-Public Use
  Company Number: HR-MERCK-1010USA01623

PATIENT
  Age: 57 Year
  Sex: Female

DRUGS (5)
  1. ZOCOR [Suspect]
     Route: 048
     Dates: start: 20090901, end: 20100301
  2. TULIP [Suspect]
     Route: 065
     Dates: start: 20090201, end: 20100301
  3. PHYSIOTENS [Concomitant]
     Route: 065
  4. GOPTEN [Concomitant]
     Route: 065
  5. TERTENSIF [Concomitant]
     Route: 065

REACTIONS (3)
  - BLOOD CREATINE PHOSPHOKINASE INCREASED [None]
  - BLOOD LACTATE DEHYDROGENASE INCREASED [None]
  - MUSCLE SPASMS [None]
